FAERS Safety Report 10136681 (Version 2)
Quarter: 2014Q2

REPORT INFORMATION
  Report Type: Spontaneous
  Country: US (occurrence: None)
  Receive Date: 20140425
  Receipt Date: 20140508
  Transmission Date: 20141212
  Serious: Yes (Death, Hospitalization)
  Sender: FDA-Public Use
  Company Number: UTC-047453

PATIENT
  Age: 62 Year
  Sex: Female
  Weight: 54.43 kg

DRUGS (1)
  1. TYVASO [Suspect]
     Indication: COR PULMONALE CHRONIC
     Route: 055
     Dates: start: 20121220

REACTIONS (3)
  - Death [None]
  - Sepsis [None]
  - Fistula [None]
